FAERS Safety Report 13545961 (Version 2)
Quarter: 2017Q3

REPORT INFORMATION
  Report Type: Report from Study
  Country: None (occurrence: DE)
  Receive Date: 20170515
  Receipt Date: 20170712
  Transmission Date: 20171127
  Serious: Yes (Hospitalization, Other)
  Sender: FDA-Public Use
  Company Number: DE-ABBVIE-17P-062-1870461-00

PATIENT
  Age: 70 Year
  Sex: Male
  Weight: 70 kg

DRUGS (6)
  1. DUODOPA [Suspect]
     Active Substance: CARBIDOPA\LEVODOPA
     Dosage: 24 H / DAY,6.3 ML /H
     Route: 050
     Dates: start: 20160707
  2. SEROQUEL [Concomitant]
     Active Substance: QUETIAPINE FUMARATE
     Indication: PRODUCT USED FOR UNKNOWN INDICATION
     Dates: end: 201612
  3. QUETIAPIN [Concomitant]
     Active Substance: QUETIAPINE
     Indication: SLEEP DISORDER
     Route: 048
     Dates: start: 201603
  4. DUODOPA [Suspect]
     Active Substance: CARBIDOPA\LEVODOPA
     Indication: PARKINSONISM
     Dosage: MD 12ML, CRD 6.3ML/H, CRN 6.3ML/H, ED 4.5ML
     Route: 050
     Dates: start: 20160518, end: 20160523
  5. DUODOPA [Suspect]
     Active Substance: CARBIDOPA\LEVODOPA
     Dosage: 6.3-FREQUENCY, 0 ML/H
     Route: 050
     Dates: start: 20160523, end: 20160707
  6. SPASMEX [Concomitant]
     Active Substance: TROSPIUM CHLORIDE
     Indication: URGE INCONTINENCE
     Route: 048
     Dates: start: 201508

REACTIONS (7)
  - General physical health deterioration [Unknown]
  - Polyneuropathy [Not Recovered/Not Resolved]
  - Hypoaesthesia [Not Recovered/Not Resolved]
  - Vitamin B12 deficiency [Recovered/Resolved]
  - Fall [Unknown]
  - Neuropathy peripheral [Not Recovered/Not Resolved]
  - Blood brain barrier defect [Recovering/Resolving]

NARRATIVE: CASE EVENT DATE: 201606
